FAERS Safety Report 10650568 (Version 5)
Quarter: 2015Q3

REPORT INFORMATION
  Report Type: Spontaneous
  Country: US (occurrence: US)
  Receive Date: 20141214
  Receipt Date: 20150923
  Transmission Date: 20151125
  Serious: Yes (Death)
  Sender: FDA-Public Use
  Company Number: US-BAUSCH-SYM-2014-19904

PATIENT
  Age: 72 Year
  Sex: Male

DRUGS (3)
  1. XENAZINE [Suspect]
     Active Substance: TETRABENAZINE
     Indication: HUNTINGTON^S DISEASE
     Route: 048
     Dates: start: 20130502
  2. XENAZINE [Suspect]
     Active Substance: TETRABENAZINE
     Indication: DYSKINESIA
     Route: 048
     Dates: start: 20130603
  3. XENAZINE [Suspect]
     Active Substance: TETRABENAZINE

REACTIONS (4)
  - Pneumonia [Fatal]
  - Muscular weakness [Unknown]
  - Somnolence [Unknown]
  - Restlessness [Unknown]

NARRATIVE: CASE EVENT DATE: 20140414
